FAERS Safety Report 14067062 (Version 1)
Quarter: 2017Q4

REPORT INFORMATION
  Report Type: Spontaneous
  Country: IT (occurrence: IT)
  Receive Date: 20171009
  Receipt Date: 20171009
  Transmission Date: 20180321
  Serious: Yes (Death)
  Sender: FDA-Public Use
  Company Number: IT-SA-2017SA192250

PATIENT
  Sex: Male

DRUGS (1)
  1. STILNOX [Suspect]
     Active Substance: ZOLPIDEM TARTRATE
     Route: 065

REACTIONS (2)
  - Fall [Fatal]
  - Off label use [Unknown]
